FAERS Safety Report 13316857 (Version 7)
Quarter: 2018Q3

REPORT INFORMATION
  Report Type: Report from Study
  Country: US (occurrence: US)
  Receive Date: 20170309
  Receipt Date: 20180901
  Transmission Date: 20181010
  Serious: No
  Sender: FDA-Public Use
  Company Number: PHEH2017US006960

PATIENT
  Age: 37 Year
  Sex: Female

DRUGS (1)
  1. COSENTYX [Suspect]
     Active Substance: SECUKINUMAB
     Indication: PSORIASIS
     Dosage: 300 MG, QMO
     Route: 058
     Dates: start: 20150315

REACTIONS (8)
  - Cerebral disorder [Unknown]
  - Skin plaque [Unknown]
  - Muscle twitching [Unknown]
  - Road traffic accident [Unknown]
  - Dyspepsia [Unknown]
  - Pollakiuria [Unknown]
  - Poor quality sleep [Unknown]
  - Scar [Unknown]

NARRATIVE: CASE EVENT DATE: 20180221
